FAERS Safety Report 17549238 (Version 1)
Quarter: 2020Q1

REPORT INFORMATION
  Report Type: Spontaneous
  Country: KR (occurrence: KR)
  Receive Date: 20200317
  Receipt Date: 20200317
  Transmission Date: 20200409
  Serious: Yes (Death, Hospitalization)
  Sender: FDA-Public Use
  Company Number: KR-ROCHE-2567786

PATIENT
  Sex: Male
  Weight: 15 kg

DRUGS (1)
  1. RIVOTRIL [Suspect]
     Active Substance: CLONAZEPAM
     Indication: EPILEPSY
     Dosage: 0.375 AT 3 PM AND 1 MG AT 7 PM
     Route: 048

REACTIONS (2)
  - Dyspnoea [Unknown]
  - Brain death [Fatal]
